FAERS Safety Report 8065484-9 (Version None)
Quarter: 2012Q1

REPORT INFORMATION
  Report Type: 
  Country: None (occurrence: None)
  Receive Date: 20120124
  Receipt Date: 20120111
  Transmission Date: 20120608
  Serious: Yes (Hospitalization)
  Sender: FDA-Public Use
  Company Number: ES-UCBSA-049510

PATIENT
  Age: 30 Year
  Sex: Male

DRUGS (3)
  1. VIMPAT [Suspect]
     Indication: EPILEPSY
     Dosage: 50 MG MORNING AND 100 MG NIGHT
     Route: 048
     Dates: start: 20110801
  2. TRILEPTAL [Concomitant]
     Indication: EPILEPSY
     Route: 048
  3. NOIAFREN [Concomitant]
     Indication: EPILEPSY
     Route: 048

REACTIONS (5)
  - VERTIGO [None]
  - AGGRESSION [None]
  - TOOTH LOSS [None]
  - DIPLOPIA [None]
  - DIZZINESS [None]
